FAERS Safety Report 7410836-0 (Version None)
Quarter: 2011Q2

REPORT INFORMATION
  Report Type: 
  Country: None (occurrence: None)
  Receive Date: 20110413
  Receipt Date: 20110405
  Transmission Date: 20111010
  Serious: No
  Sender: FDA-Public Use
  Company Number: US-PFIZER INC-2011075450

PATIENT
  Sex: Male
  Weight: 83.9 kg

DRUGS (2)
  1. CALCIUM [Concomitant]
     Dosage: UNK
  2. ADVIL LIQUI-GELS [Suspect]
     Indication: TOOTHACHE
     Dosage: 200 MG, AS NEEDED
     Route: 048
     Dates: start: 20110316

REACTIONS (1)
  - PHOTOPSIA [None]
